FAERS Safety Report 10629537 (Version 1)
Quarter: 2014Q4

REPORT INFORMATION
  Report Type: Spontaneous
  Country: US (occurrence: US)
  Receive Date: 20141205
  Receipt Date: 20141205
  Transmission Date: 20150529
  Serious: No
  Sender: FDA-Public Use
  Company Number: US-BRISTOL-MYERS SQUIBB COMPANY-20855979

PATIENT
  Age: 53 Year
  Sex: Male
  Weight: 86.17 kg

DRUGS (1)
  1. BARACLUDE [Suspect]
     Active Substance: ENTECAVIR
     Indication: HEPATITIS B VIRUS TEST
     Dosage: SINCE 2008 OR2009

REACTIONS (4)
  - Malaise [Unknown]
  - Drug dose omission [Unknown]
  - Abdominal pain [Unknown]
  - Lethargy [Unknown]
